FAERS Safety Report 19462541 (Version 1)
Quarter: 2021Q2

REPORT INFORMATION
  Report Type: Spontaneous
  Country: DE (occurrence: DE)
  Receive Date: 20210625
  Receipt Date: 20210625
  Transmission Date: 20210717
  Serious: Yes (Other)
  Sender: FDA-Public Use
  Company Number: DE-ORGANON-O2104DEU002290

PATIENT
  Age: 37 Year
  Sex: Female
  Weight: 70 kg

DRUGS (3)
  1. IMPLANON NXT [Suspect]
     Active Substance: ETONOGESTREL
     Dosage: 1 IMPLANT
     Route: 059
  2. IMPLANON NXT [Suspect]
     Active Substance: ETONOGESTREL
     Indication: CONTRACEPTION
     Dosage: 1 IMPLANT IN HER LEFT UPPER ARM
     Route: 059
     Dates: start: 20180420, end: 20210528
  3. IMPLANON NXT [Suspect]
     Active Substance: ETONOGESTREL
     Dosage: 1 IMPLANT IN HER FOREARM
     Route: 059
     Dates: start: 20210423, end: 20210528

REACTIONS (10)
  - Weight increased [Unknown]
  - Complication of device removal [Recovered/Resolved]
  - Overdose [Unknown]
  - Incorrect product administration duration [Unknown]
  - Complication of device removal [Recovered/Resolved]
  - General anaesthesia [Unknown]
  - Surgery [Unknown]
  - Complication associated with device [Recovered/Resolved]
  - Device use issue [Recovered/Resolved]
  - Device placement issue [Recovered/Resolved]

NARRATIVE: CASE EVENT DATE: 20210420
